FAERS Safety Report 10933956 (Version 1)
Quarter: 2015Q1

REPORT INFORMATION
  Report Type: Spontaneous
  Country: ES (occurrence: ES)
  Receive Date: 20150320
  Receipt Date: 20150320
  Transmission Date: 20150721
  Serious: Yes (Hospitalization)
  Sender: FDA-Public Use
  Company Number: ES-MYLANLABS-2015M1008790

PATIENT

DRUGS (9)
  1. ETORICOXIB [Interacting]
     Active Substance: ETORICOXIB
     Indication: BACK PAIN
     Dosage: ETORICOXIB 90; ADMINISTERED FOR 1 MONTH
     Route: 065
  2. DEFLAZACORT [Concomitant]
     Active Substance: DEFLAZACORT
     Indication: ASTHMA
     Dosage: ADMINISTERED FOR 5 YEARS
     Route: 065
  3. ATORVASTATIN [Concomitant]
     Active Substance: ATORVASTATIN
     Indication: DYSLIPIDAEMIA
     Dosage: ADMINISTERED FOR 6 MONTHS
     Route: 065
  4. SALBUTAMOL [Concomitant]
     Active Substance: ALBUTEROL
     Indication: ASTHMA
     Dosage: ON DEMAND; ADMINISTERED FOR 5 YEARS
     Route: 065
  5. OMEPRAZOLE. [Concomitant]
     Active Substance: OMEPRAZOLE
     Indication: PROPHYLAXIS AGAINST GASTROINTESTINAL ULCER
     Dosage: ADMINISTERED FOR 1 MONTH
     Route: 065
  6. MONTELUKAST [Concomitant]
     Active Substance: MONTELUKAST SODIUM
     Indication: ASTHMA
     Dosage: ADMINISTERED FOR 5 YEARS
     Route: 065
  7. PARACETAMOL/TRAMADOL [Interacting]
     Active Substance: ACETAMINOPHEN\TRAMADOL
     Indication: BACK PAIN
     Dosage: ADMINISTERED FOR 1 MONTH
     Route: 065
  8. ESCITALOPRAM [Suspect]
     Active Substance: ESCITALOPRAM OXALATE
     Indication: DEPRESSION
     Dosage: ESCITALOPRAM 10 ADMINISTERED FOR 2 YEARS
     Route: 065
  9. TRAMADOL [Interacting]
     Active Substance: TRAMADOL
     Indication: BACK PAIN
     Dosage: ADMINISTERED FOR 1 MONTH
     Route: 065

REACTIONS (3)
  - Drug interaction [Unknown]
  - Hemianopia [Unknown]
  - Aphasia [Unknown]
